FAERS Safety Report 8555297-3 (Version None)
Quarter: 2012Q3

REPORT INFORMATION
  Report Type: 
  Country: None (occurrence: None)
  Receive Date: 20120731
  Receipt Date: 20111020
  Transmission Date: 20120928
  Serious: Yes (Other)
  Sender: FDA-Public Use
  Company Number: US-ASTRAZENECA-2011SE63515

PATIENT
  Age: 56 Year
  Sex: Male
  Weight: 81.6 kg

DRUGS (5)
  1. CUBAR [Concomitant]
  2. QUETIAPINE FUMARATE [Suspect]
  3. PLUVENT [Concomitant]
  4. COMBIVENT [Concomitant]
  5. QUETIAPINE FUMARATE [Suspect]
     Dates: start: 20111016

REACTIONS (8)
  - FEAR [None]
  - ABNORMAL DREAMS [None]
  - MENTAL DISORDER [None]
  - AGORAPHOBIA [None]
  - INSOMNIA [None]
  - NIGHT SWEATS [None]
  - SUICIDAL IDEATION [None]
  - FEELING ABNORMAL [None]
